FAERS Safety Report 23675140 (Version 4)
Quarter: 2025Q1

REPORT INFORMATION
  Report Type: Report from Study
  Country: CA (occurrence: CA)
  Receive Date: 20240326
  Receipt Date: 20250208
  Transmission Date: 20250409
  Serious: Yes (Hospitalization, Other)
  Sender: JOHNSON AND JOHNSON
  Company Number: CA-JNJFOC-20210934472

PATIENT
  Age: 12 Year
  Sex: Male
  Weight: 59.3 kg

DRUGS (11)
  1. REMICADE [Suspect]
     Active Substance: INFLIXIMAB
     Indication: Crohn^s disease
     Dosage: PATIENT RECEIVING REMICADE DOSE 300 MG AT WEEKS 0,2,6 THEN EVERY 8 WEEKS.?5.1 MG/KG THERAPY START DA
     Route: 041
     Dates: start: 20201104
  2. REMICADE [Suspect]
     Active Substance: INFLIXIMAB
     Route: 041
  3. REMICADE [Suspect]
     Active Substance: INFLIXIMAB
     Route: 041
  4. REMICADE [Suspect]
     Active Substance: INFLIXIMAB
     Route: 041
  5. REMICADE [Suspect]
     Active Substance: INFLIXIMAB
     Route: 041
     Dates: start: 20210920
  6. REMICADE [Suspect]
     Active Substance: INFLIXIMAB
     Dosage: MAINTENANCE INFUSION , DOSE INCREASED
     Route: 041
  7. REMICADE [Suspect]
     Active Substance: INFLIXIMAB
     Route: 041
  8. REMICADE [Suspect]
     Active Substance: INFLIXIMAB
     Route: 041
  9. REMICADE [Suspect]
     Active Substance: INFLIXIMAB
     Dosage: PATIENT RECEIVING REMICADE DOSE 300 MG AT WEEKS 0,2,6 THEN EVERY 8 WEEKS.?5.1 MG/KG THERAPY START DA
     Route: 041
     Dates: start: 20201104
  10. REMICADE [Suspect]
     Active Substance: INFLIXIMAB
     Dosage: PATIENT RECEIVING REMICADE DOSE 300 MG AT WEEKS 0,2,6 THEN EVERY 8 WEEKS.?5.1 MG/KG THERAPY START DA
     Route: 041
     Dates: start: 20201104
  11. METHOTREXATE [Concomitant]
     Active Substance: METHOTREXATE
     Indication: Product used for unknown indication
     Route: 048

REACTIONS (6)
  - Brain abscess [Recovered/Resolved]
  - Sinusitis [Recovered/Resolved]
  - Large intestinal ulcer [Not Recovered/Not Resolved]
  - Gastrointestinal inflammation [Not Recovered/Not Resolved]
  - Drug level decreased [Unknown]
  - Off label use [Unknown]

NARRATIVE: CASE EVENT DATE: 20201104
